FAERS Safety Report 5145808-2 (Version None)
Quarter: 2006Q4

REPORT INFORMATION
  Report Type: 
  Country: None (occurrence: None)
  Receive Date: 20061108
  Receipt Date: 20061101
  Transmission Date: 20070319
  Serious: Yes (Hospitalization, Other)
  Sender: FDA-Public Use
  Company Number: US-JNJFOC-20061100569

PATIENT
  Sex: Female
  Weight: 63.5 kg

DRUGS (3)
  1. REMICADE [Suspect]
     Indication: CROHN'S DISEASE
     Route: 042
  2. LIBROX [Concomitant]
  3. SYNTHROID [Concomitant]
     Indication: HYPOTHYROIDISM
     Dosage: DURATION= 1 YEAR

REACTIONS (6)
  - ANGINA PECTORIS [None]
  - ARTHRALGIA [None]
  - CARDIAC DISORDER [None]
  - FISTULA [None]
  - HYPERSENSITIVITY [None]
  - HYPERTENSION [None]
